FAERS Safety Report 25140631 (Version 1)
Quarter: 2025Q1

REPORT INFORMATION
  Report Type: Report from Study
  Country: IT (occurrence: IT)
  Receive Date: 20250331
  Receipt Date: 20250331
  Transmission Date: 20250409
  Serious: Yes (Other)
  Sender: PFIZER
  Company Number: IT-PFIZER INC-PV202500036740

PATIENT
  Age: 78 Year
  Sex: Male
  Weight: 87 kg

DRUGS (1)
  1. INOTUZUMAB OZOGAMICIN [Suspect]
     Active Substance: INOTUZUMAB OZOGAMICIN
     Indication: Acute lymphocytic leukaemia

REACTIONS (1)
  - Hepatorenal syndrome [Recovered/Resolved]

NARRATIVE: CASE EVENT DATE: 20201011
